FAERS Safety Report 16700019 (Version 2)
Quarter: 2019Q3

REPORT INFORMATION
  Report Type: Spontaneous
  Country: PT (occurrence: PT)
  Receive Date: 20190813
  Receipt Date: 20190829
  Transmission Date: 20191004
  Serious: Yes (Life-Threatening, Other)
  Sender: FDA-Public Use
  Company Number: PT-BAXTER-2019BAX015297

PATIENT
  Age: 80 Year
  Sex: Male
  Weight: 60 kg

DRUGS (15)
  1. MIDAZOLAM BAXTER [Suspect]
     Active Substance: MIDAZOLAM HYDROCHLORIDE
     Indication: PREMEDICATION
     Dosage: UNK
     Route: 065
     Dates: start: 20180614, end: 20180614
  2. ROCURONIUM [Suspect]
     Active Substance: ROCURONIUM BROMIDE
     Dosage: 0.83 MG / KG
     Route: 065
  3. FENTANEST [Suspect]
     Active Substance: FENTANYL CITRATE
     Indication: INDUCTION OF ANAESTHESIA
     Dosage: UNK
     Route: 065
  4. OXYGEN. [Concomitant]
     Active Substance: OXYGEN
     Indication: MAINTENANCE OF ANAESTHESIA
     Dosage: MIXTURE OF 45%
     Route: 055
  5. PARACETAMOL [Suspect]
     Active Substance: ACETAMINOPHEN
     Indication: ANALGESIC THERAPY
     Dosage: UNK
     Route: 065
  6. PROPOFOL NORAMEDA 20 MG/ML EMULS?O INJECT?VEL OU PARA PERFUS?O [Suspect]
     Active Substance: PROPOFOL
     Indication: INDUCTION OF ANAESTHESIA
     Route: 065
  7. ROCURONIUM [Suspect]
     Active Substance: ROCURONIUM BROMIDE
     Indication: INDUCTION OF ANAESTHESIA
     Dosage: 0.33 MG / KG
     Route: 065
  8. REMIFENTANIL [Suspect]
     Active Substance: REMIFENTANIL
     Indication: MAINTENANCE OF ANAESTHESIA
     Dosage: TIME INTERVAL: 0.15 MINUTES
     Route: 042
  9. FENTANYL. [Suspect]
     Active Substance: FENTANYL
     Indication: INDUCTION OF ANAESTHESIA
     Route: 065
  10. PARECOXIB [Concomitant]
     Active Substance: PARECOXIB
     Indication: ANALGESIC THERAPY
     Route: 065
  11. SEVOFLURANO BAXTER 100% L?QUIDO PARA INALA??O POR VAPORIZA??O [Suspect]
     Active Substance: SEVOFLURANE
     Indication: MAINTENANCE OF ANAESTHESIA
     Dosage: 1,0-1,2% IN A MIX OF 45% OF O2 AND AIR
     Route: 055
  12. FENTANEST [Suspect]
     Active Substance: FENTANYL CITRATE
     Indication: PRODUCT USED FOR UNKNOWN INDICATION
     Route: 065
  13. METAMIZOLE [Suspect]
     Active Substance: METAMIZOLE
     Indication: ANALGESIC THERAPY
     Dosage: UNK
     Route: 065
  14. SUGAMMADEX [Concomitant]
     Active Substance: SUGAMMADEX
     Indication: PRODUCT USED FOR UNKNOWN INDICATION
     Dosage: UNK
     Route: 065
  15. PROPOFOL. [Concomitant]
     Active Substance: PROPOFOL
     Indication: INDUCTION OF ANAESTHESIA
     Dosage: UNK
     Route: 065

REACTIONS (4)
  - Neuromuscular block prolonged [Recovered/Resolved]
  - Hypertension [Unknown]
  - Drug interaction [Recovered/Resolved]
  - Respiratory acidosis [Unknown]
